FAERS Safety Report 8847521 (Version 1)
Quarter: 2012Q4

REPORT INFORMATION
  Report Type: 
  Country: US (occurrence: US)
  Receive Date: 20121018
  Receipt Date: 20121018
  Transmission Date: 20130627
  Serious: Yes (Other)
  Sender: FDA-Public Use
  Company Number: US-ELI_LILLY_AND_COMPANY-US201210004811

PATIENT
  Age: 77 Year
  Sex: Male

DRUGS (2)
  1. CIALIS [Suspect]
     Indication: ERECTILE DYSFUNCTION
     Dosage: 5 mg, prn
     Route: 048
     Dates: start: 20120925
  2. CIALIS [Suspect]
     Dosage: 10 mg, prn

REACTIONS (2)
  - Penile haemorrhage [Unknown]
  - Drug ineffective [Unknown]
